FAERS Safety Report 4967889-9 (Version None)
Quarter: 2006Q2

REPORT INFORMATION
  Report Type: 
  Country: None (occurrence: None)
  Receive Date: 20060410
  Receipt Date: 20060307
  Transmission Date: 20061013
  Serious: Yes (Death, Hospitalization, Other)
  Sender: FDA-Public Use
  Company Number: US-MERCK-0603USA01479

PATIENT
  Age: 78 Year
  Sex: Female
  Weight: 50 kg

DRUGS (2)
  1. VIOXX [Suspect]
     Indication: ARTHRITIS
     Route: 048
     Dates: start: 20010228, end: 20031213
  2. COUMADIN [Concomitant]
     Route: 048
     Dates: start: 20001103, end: 20020407

REACTIONS (4)
  - CHEST PAIN [None]
  - DEATH [None]
  - ISCHAEMIC STROKE [None]
  - RENAL FAILURE [None]
